FAERS Safety Report 7028655-6 (Version None)
Quarter: 2010Q4

REPORT INFORMATION
  Report Type: 
  Country: None (occurrence: None)
  Receive Date: 20101001
  Receipt Date: 20101001
  Transmission Date: 20110411
  Serious: Yes (Death)
  Sender: FDA-Public Use
  Company Number: None

PATIENT
  Age: 75 Year
  Sex: Male
  Weight: 81 kg

DRUGS (11)
  1. CUBICIN [Suspect]
     Indication: OSTEOMYELITIS
     Dosage: 490 MG Q24H IV
     Route: 042
     Dates: start: 20100625, end: 20100707
  2. CUBICIN [Suspect]
     Indication: STAPHYLOCOCCAL INFECTION
     Dosage: 490 MG Q24H IV
     Route: 042
     Dates: start: 20100625, end: 20100707
  3. CUBICIN [Suspect]
     Indication: OSTEOMYELITIS
     Dosage: 490 MG Q24H IV
     Route: 042
     Dates: start: 20100708, end: 20100715
  4. CUBICIN [Suspect]
     Indication: STAPHYLOCOCCAL INFECTION
     Dosage: 490 MG Q24H IV
     Route: 042
     Dates: start: 20100708, end: 20100715
  5. BRONCHOALVEOLAR LAVAGE MICROSCOPIC EXAM [Concomitant]
  6. CYTOSPIN PREPARATIONS [Concomitant]
  7. NEUTROPHILS [Concomitant]
  8. HEMATOPOETIC PROGENITOR CELLS HUMAN [Concomitant]
  9. MACROPHAGES [Concomitant]
  10. EOSINOPHILS [Concomitant]
  11. SPECIAL STAINS FOR FUNGI AND PNEUMOCYCSTIS -GMX- [Concomitant]

REACTIONS (12)
  - ATRIAL FIBRILLATION [None]
  - BRONCHIECTASIS [None]
  - CONDITION AGGRAVATED [None]
  - DEEP VEIN THROMBOSIS [None]
  - DELIRIUM [None]
  - EMBOLISM VENOUS [None]
  - EOSINOPHILIA [None]
  - HYPERSENSITIVITY [None]
  - LUNG INFILTRATION [None]
  - PULMONARY EMBOLISM [None]
  - PULMONARY TOXICITY [None]
  - RESPIRATORY FAILURE [None]
